FAERS Safety Report 21064518 (Version 3)
Quarter: 2022Q3

REPORT INFORMATION
  Report Type: Spontaneous
  Country: US (occurrence: US)
  Receive Date: 20220711
  Receipt Date: 20220818
  Transmission Date: 20221026
  Serious: No
  Sender: FDA-Public Use
  Company Number: US-PFIZER INC-202101552930

PATIENT
  Age: 40 Year
  Sex: Female
  Weight: 80.74 kg

DRUGS (2)
  1. GENOTROPIN [Suspect]
     Active Substance: SOMATROPIN
     Indication: Growth hormone deficiency
     Dosage: 0.8 MG, 1X/DAY
  2. GENOTROPIN [Suspect]
     Active Substance: SOMATROPIN
     Dosage: 0.9 MG, 1X/DAY (NIGHTLY)
     Route: 058

REACTIONS (7)
  - Poor quality device used [Unknown]
  - Insulin-like growth factor decreased [Unknown]
  - Device mechanical issue [Unknown]
  - Device difficult to use [Unknown]
  - Product physical issue [Unknown]
  - Device leakage [Unknown]
  - Drug dose omission by device [Unknown]

NARRATIVE: CASE EVENT DATE: 20220601
